FAERS Safety Report 25336733 (Version 2)
Quarter: 2025Q2

REPORT INFORMATION
  Report Type: Spontaneous
  Country: CN (occurrence: CN)
  Receive Date: 20250520
  Receipt Date: 20250528
  Transmission Date: 20250717
  Serious: Yes (Hospitalization)
  Sender: MERCK SHARP & DOHME LLC
  Company Number: CN-009507513-2285615

PATIENT
  Age: 47 Year
  Sex: Male
  Weight: 84 kg

DRUGS (3)
  1. KEYTRUDA [Suspect]
     Active Substance: PEMBROLIZUMAB
     Indication: Cholangiocarcinoma
     Dosage: 200MG INTRAVENOUS DRIP ONCE A DAY
     Dates: start: 20250425, end: 20250425
  2. GEMCITABINE [Suspect]
     Active Substance: GEMCITABINE
     Indication: Cholangiocarcinoma
     Dosage: 1600MG INTRAVENOUS DRIP ONCE A DAY
     Dates: start: 20250425, end: 20250425
  3. CARBOPLATIN [Suspect]
     Active Substance: CARBOPLATIN
     Indication: Cholangiocarcinoma
     Dosage: 300MG INTRAVENOUS DRIP ONCE A DAY
     Dates: start: 20250425, end: 20250425

REACTIONS (1)
  - Platelet count decreased [Unknown]

NARRATIVE: CASE EVENT DATE: 20250506
